FAERS Safety Report 8541016-3 (Version None)
Quarter: 2012Q3

REPORT INFORMATION
  Report Type: 
  Country: None (occurrence: None)
  Receive Date: 20120726
  Receipt Date: 20110809
  Transmission Date: 20120928
  Serious: No
  Sender: FDA-Public Use
  Company Number: US-ASTRAZENECA-2011SE47465

PATIENT
  Age: 50 Year
  Sex: Female

DRUGS (2)
  1. ATIVAN [Concomitant]
     Indication: ANXIETY
  2. SEROQUEL [Suspect]
     Indication: ANXIETY
     Route: 048
     Dates: start: 20110805, end: 20110805

REACTIONS (4)
  - TACHYCARDIA [None]
  - OFF LABEL USE [None]
  - EMOTIONAL POVERTY [None]
  - THINKING ABNORMAL [None]
